FAERS Safety Report 12183177 (Version 4)
Quarter: 2016Q2

REPORT INFORMATION
  Report Type: Report from Study
  Country: JP (occurrence: JP)
  Receive Date: 20160316
  Receipt Date: 20160505
  Transmission Date: 20160815
  Serious: Yes (Death)
  Sender: FDA-Public Use
  Company Number: JP-JT-EVA201600489KERYXP-001

PATIENT
  Age: 73 Year
  Sex: Female
  Weight: 40 kg

DRUGS (13)
  1. JUSO [Concomitant]
     Active Substance: SODIUM BICARBONATE
     Dosage: 1.5 G, QD
     Route: 048
     Dates: start: 20141210
  2. CRESTOR [Concomitant]
     Active Substance: ROSUVASTATIN CALCIUM
     Dosage: 2.5 MG, QD
     Route: 048
     Dates: start: 20141210
  3. ARTIST [Concomitant]
     Active Substance: CARVEDILOL
     Dosage: 20 MG, QD
     Route: 048
     Dates: start: 20141210
  4. MICARDIS [Concomitant]
     Active Substance: TELMISARTAN
     Dosage: 40 MG, QD
     Route: 048
     Dates: start: 20141210
  5. NATRIX [Concomitant]
     Active Substance: INDAPAMIDE
     Dosage: 1 MG, QD
     Route: 048
     Dates: start: 20141210
  6. TAKELDA [Concomitant]
     Active Substance: ASPIRIN\LANSOPRAZOLE
     Indication: HYPERCHLORHYDRIA
     Dosage: 1 DF, QD
     Route: 048
     Dates: start: 20141210
  7. AMLODIN [Concomitant]
     Active Substance: AMLODIPINE BESYLATE
     Dosage: 10 MG, QD
     Route: 048
     Dates: start: 20150404
  8. MAGMITT [Concomitant]
     Active Substance: MAGNESIUM OXIDE
     Dosage: 660 MG, QD
     Route: 048
     Dates: start: 20150718
  9. KALIMATE [Concomitant]
     Active Substance: CALCIUM POLYSTYRENE SULFONATE
     Dosage: 50 G, QD
     Route: 048
     Dates: start: 20141210
  10. TRAMCET [Concomitant]
     Active Substance: ACETAMINOPHEN\TRAMADOL
     Dosage: 4 DF, QD
     Route: 048
     Dates: start: 20150718
  11. RIONA [Suspect]
     Active Substance: FERRIC CITRATE ANHYDROUS
     Indication: HYPERPHOSPHATAEMIA
     Dosage: 750 MG, QD
     Route: 048
     Dates: start: 20151121, end: 20160102
  12. SPIROPENT [Concomitant]
     Active Substance: CLENBUTEROL HYDROCHLORIDE
     Indication: STRESS URINARY INCONTINENCE
     Dosage: 60 MICROGRAM, QD
     Route: 048
     Dates: start: 20151121
  13. MIRCERA [Concomitant]
     Active Substance: METHOXY POLYETHYLENE GLYCOL-EPOETIN BETA
     Indication: NEPHROGENIC ANAEMIA
     Dosage: 250 MICROGRAM, UNK
     Route: 042

REACTIONS (1)
  - Subarachnoid haemorrhage [Fatal]

NARRATIVE: CASE EVENT DATE: 20160103
